FAERS Safety Report 6668488-3 (Version None)
Quarter: 2010Q2

REPORT INFORMATION
  Report Type: 
  Country: None (occurrence: None)
  Receive Date: 20100406
  Receipt Date: 20100401
  Transmission Date: 20101027
  Serious: Yes (Death)
  Sender: FDA-Public Use
  Company Number: PHEH2010US02541

PATIENT
  Sex: Male
  Weight: 235 kg

DRUGS (1)
  1. EXJADE [Suspect]
     Indication: MYELODYSPLASTIC SYNDROME
     Dosage: 500 MG, (4 TABS DAILY)
     Route: 048
     Dates: start: 20090804

REACTIONS (1)
  - DEATH [None]
